FAERS Safety Report 26213250 (Version 1)
Quarter: 2025Q4

REPORT INFORMATION
  Report Type: Report from Study
  Country: EU (occurrence: EU)
  Receive Date: 20251230
  Receipt Date: 20251230
  Transmission Date: 20260118
  Serious: Yes (Death)
  Sender: MYLAN
  Company Number: EU-MYLANLABS-2025M1110507

PATIENT

DRUGS (8)
  1. LENALIDOMIDE [Suspect]
     Active Substance: LENALIDOMIDE
     Indication: Diffuse large B-cell lymphoma
     Dosage: 25 MILLIGRAM, QD; 25 MG/DAY, FOR 3 OF EVERY 4 WEEKS
  2. LENALIDOMIDE [Suspect]
     Active Substance: LENALIDOMIDE
     Dosage: 25 MILLIGRAM, QD; 25 MG/DAY, FOR 3 OF EVERY 4 WEEKS
     Route: 065
  3. LENALIDOMIDE [Suspect]
     Active Substance: LENALIDOMIDE
     Dosage: 25 MILLIGRAM, QD; 25 MG/DAY, FOR 3 OF EVERY 4 WEEKS
     Route: 065
  4. LENALIDOMIDE [Suspect]
     Active Substance: LENALIDOMIDE
     Dosage: 25 MILLIGRAM, QD; 25 MG/DAY, FOR 3 OF EVERY 4 WEEKS
  5. TAFASITAMAB [Suspect]
     Active Substance: TAFASITAMAB
     Indication: Diffuse large B-cell lymphoma
     Dosage: 12 MILLIGRAM/KILOGRAM, CYCLE; CYCLIC TAFASITAMAB 12 MG/KG
  6. TAFASITAMAB [Suspect]
     Active Substance: TAFASITAMAB
     Dosage: 12 MILLIGRAM/KILOGRAM, CYCLE; CYCLIC TAFASITAMAB 12 MG/KG
     Route: 065
  7. TAFASITAMAB [Suspect]
     Active Substance: TAFASITAMAB
     Dosage: 12 MILLIGRAM/KILOGRAM, CYCLE; CYCLIC TAFASITAMAB 12 MG/KG
     Route: 065
  8. TAFASITAMAB [Suspect]
     Active Substance: TAFASITAMAB
     Dosage: 12 MILLIGRAM/KILOGRAM, CYCLE; CYCLIC TAFASITAMAB 12 MG/KG

REACTIONS (1)
  - Progressive multifocal leukoencephalopathy [Fatal]
